FAERS Safety Report 8371307-0 (Version None)
Quarter: 2012Q2

REPORT INFORMATION
  Report Type: 
  Country: None (occurrence: None)
  Receive Date: 20120518
  Receipt Date: 20120514
  Transmission Date: 20120825
  Serious: Yes (Hospitalization)
  Sender: FDA-Public Use
  Company Number: US-BAYER-2012-009765

PATIENT
  Age: 41 Year
  Sex: Female
  Weight: 90.703 kg

DRUGS (8)
  1. PROMETRIUM [Concomitant]
     Dosage: 200 MG, HS
  2. ROCEPHIN [Concomitant]
     Dosage: 500 MG, UNK
     Route: 030
     Dates: start: 20030606
  3. KEFLEX [Concomitant]
     Dosage: 500 MG, QID
     Dates: start: 20030507
  4. YASMIN [Suspect]
     Dosage: UNK
     Dates: start: 20030501, end: 20030601
  5. LEVOTHYROXINE SODIUM [Concomitant]
     Indication: HYPOTHYROIDISM
     Dosage: 0.15 QD
  6. TYLENOL W/ CODEINE [Concomitant]
     Indication: PAIN
     Dosage: UNK UNK, PRN
     Dates: start: 20030606
  7. VENTALIN [Concomitant]
     Indication: ASTHMA
  8. PREDNISONE [Concomitant]
     Dosage: 5 MG, BID
     Dates: start: 20030506

REACTIONS (7)
  - THROMBOPHLEBITIS SUPERFICIAL [None]
  - EMOTIONAL DISTRESS [None]
  - INJURY [None]
  - PAIN [None]
  - SCAR [None]
  - DEEP VEIN THROMBOSIS [None]
  - PAIN IN EXTREMITY [None]
